FAERS Safety Report 24299200 (Version 1)
Quarter: 2024Q3

REPORT INFORMATION
  Report Type: Spontaneous
  Country: US (occurrence: US)
  Receive Date: 20240909
  Receipt Date: 20240909
  Transmission Date: 20241017
  Serious: Yes (Other)
  Sender: PFIZER
  Company Number: US-PFIZER INC-202400250521

PATIENT
  Age: 60 Year
  Sex: Male
  Weight: 90.7 kg

DRUGS (1)
  1. BRENTUXIMAB VEDOTIN [Suspect]
     Active Substance: BRENTUXIMAB VEDOTIN
     Indication: Anaplastic large cell lymphoma T- and null-cell types
     Dosage: 5 CYCLES

REACTIONS (2)
  - Neuropathy peripheral [Unknown]
  - Neoplasm progression [Unknown]
